FAERS Safety Report 8202752-1 (Version None)
Quarter: 2012Q1

REPORT INFORMATION
  Report Type: 
  Country: None (occurrence: None)
  Receive Date: 20120312
  Receipt Date: 20120312
  Transmission Date: 20120608
  Serious: No
  Sender: FDA-Public Use
  Company Number: None

PATIENT
  Age: 24 Year
  Sex: Female
  Weight: 72.121 kg

DRUGS (2)
  1. IMPLANON [Suspect]
  2. IMPLANON [Concomitant]

REACTIONS (11)
  - OEDEMA PERIPHERAL [None]
  - POLYMENORRHOEA [None]
  - MALAISE [None]
  - PAIN IN EXTREMITY [None]
  - BREAST PAIN [None]
  - VAGINAL INFECTION [None]
  - VAGINITIS BACTERIAL [None]
  - DIZZINESS [None]
  - PELVIC PAIN [None]
  - MENORRHAGIA [None]
  - MOOD ALTERED [None]
